FAERS Safety Report 9422464 (Version 2)
Quarter: 2014Q1

REPORT INFORMATION
  Report Type: Spontaneous
  Country: US (occurrence: US)
  Receive Date: 20130726
  Receipt Date: 20140204
  Transmission Date: 20141002
  Serious: Yes (Hospitalization, Other)
  Sender: FDA-Public Use
  Company Number: US-NOVOPROD-383741

PATIENT
  Age: 49 Year
  Sex: Female
  Weight: 80.73 kg

DRUGS (9)
  1. VICTOZA [Suspect]
     Indication: TYPE 2 DIABETES MELLITUS
     Dosage: 18MG/3ML, QD
     Route: 058
     Dates: start: 20110418, end: 20111203
  2. JANUVIA [Suspect]
     Indication: TYPE 2 DIABETES MELLITUS
     Dosage: 50 MG, QD
     Route: 048
     Dates: start: 20090921, end: 20100828
  3. BUTALBITAL W/CAFFEINE/CODEINE/PARACETAMOL [Concomitant]
     Indication: MIGRAINE
     Dosage: UNK
  4. MULTIVITAMIN                       /00097801/ [Concomitant]
     Indication: ROUTINE HEALTH MAINTENANCE
     Dosage: UNK
     Dates: start: 1996
  5. VITAMIN C                          /00008001/ [Concomitant]
     Indication: ROUTINE HEALTH MAINTENANCE
     Dosage: UNK
     Dates: start: 1996
  6. B-12 [Concomitant]
     Indication: ROUTINE HEALTH MAINTENANCE
     Dosage: UNK
     Dates: start: 1996
  7. VITAMIN B 6 [Concomitant]
     Indication: ROUTINE HEALTH MAINTENANCE
     Dosage: UNK
     Dates: start: 1996
  8. DOCUSATE SODIUM [Concomitant]
     Indication: FAECES HARD
     Dosage: UNK
     Dates: start: 2012
  9. CULTURELLE [Concomitant]
     Indication: PROBIOTIC THERAPY
     Dosage: UNK
     Dates: start: 2012

REACTIONS (1)
  - Pancreatic carcinoma [Not Recovered/Not Resolved]
